FAERS Safety Report 18816606 (Version 1)
Quarter: 2021Q1

REPORT INFORMATION
  Report Type: Spontaneous
  Country: US (occurrence: US)
  Receive Date: 20210201
  Receipt Date: 20210201
  Transmission Date: 20210419
  Serious: Yes (Other)
  Sender: FDA-Public Use
  Company Number: US-MYLANLABS-2021M1005498

PATIENT
  Age: 13 Year
  Sex: Male

DRUGS (11)
  1. BUDESONIDE W/FORMOTEROL FUMARATE [Suspect]
     Active Substance: BUDESONIDE\FORMOTEROL FUMARATE
     Indication: CHRONIC RHINOSINUSITIS WITHOUT NASAL POLYPS
     Dosage: DOSE: 160MCG/4.5MCG; 2 PUFFS EVERYDAY
     Route: 065
  2. MEPOLIZUMAB [Suspect]
     Active Substance: MEPOLIZUMAB
     Dosage: 300 MILLIGRAM, MONTHLY....
     Route: 065
  3. BUDESONIDE. [Suspect]
     Active Substance: BUDESONIDE
     Indication: SINUSITIS
     Dosage: UNK UNK, BID
     Route: 065
  4. BUDESONIDE. [Suspect]
     Active Substance: BUDESONIDE
     Indication: PERIORBITAL CELLULITIS
  5. MEPOLIZUMAB [Suspect]
     Active Substance: MEPOLIZUMAB
     Indication: GRANULOMATOSIS WITH POLYANGIITIS
     Dosage: 100 MILLIGRAM, MONTHLY...
     Route: 065
  6. ALBUTEROL                          /00139501/ [Concomitant]
     Active Substance: ALBUTEROL
     Indication: CHRONIC RHINOSINUSITIS WITH NASAL POLYPS
     Dosage: AS REQUIRED
     Route: 065
  7. PREDNISONE. [Suspect]
     Active Substance: PREDNISONE
     Indication: CHRONIC RHINOSINUSITIS WITH NASAL POLYPS
     Dosage: 2 MILLIGRAM/KILOGRAM, QD
     Route: 065
  8. DUPILUMAB [Concomitant]
     Active Substance: DUPILUMAB
     Dosage: 300 MILLIGRAM EVERY 14 DAYS
     Route: 065
  9. FORMOTEROL W/MOMETASONE [Suspect]
     Active Substance: FORMOTEROL\MOMETASONE
     Indication: CHRONIC RHINOSINUSITIS WITH NASAL POLYPS
     Dosage: DOSE: 200MCG/5MCG...
     Route: 065
  10. DUPILUMAB [Concomitant]
     Active Substance: DUPILUMAB
     Indication: GRANULOMATOSIS WITH POLYANGIITIS
     Dosage: 600 MILLIGRAM LOADING DOSE
     Route: 065
  11. MONTELUKAST [Concomitant]
     Active Substance: MONTELUKAST SODIUM
     Indication: CHRONIC RHINOSINUSITIS WITH NASAL POLYPS
     Route: 065

REACTIONS (4)
  - Drug ineffective [Unknown]
  - Rebound effect [Unknown]
  - Adrenal insufficiency [Unknown]
  - Bone density decreased [Unknown]
